FAERS Safety Report 6725474-2 (Version None)
Quarter: 2010Q2

REPORT INFORMATION
  Report Type: 
  Country: None (occurrence: None)
  Receive Date: 20100514
  Receipt Date: 20100504
  Transmission Date: 20101027
  Serious: Yes (Other)
  Sender: FDA-Public Use
  Company Number: US-CELGENEUS-163-20785-10050622

PATIENT
  Sex: Male

DRUGS (1)
  1. THALOMID [Suspect]
     Route: 048
     Dates: start: 20100401

REACTIONS (6)
  - ASTHENIA [None]
  - EPISTAXIS [None]
  - INFREQUENT BOWEL MOVEMENTS [None]
  - LETHARGY [None]
  - MOVEMENT DISORDER [None]
  - PROSTATOMEGALY [None]
